FAERS Safety Report 16915296 (Version 7)
Quarter: 2020Q3

REPORT INFORMATION
  Report Type: Report from Study
  Country: US (occurrence: US)
  Receive Date: 20191014
  Receipt Date: 20200825
  Transmission Date: 20201102
  Serious: Yes (Hospitalization, Other)
  Sender: FDA-Public Use
  Company Number: US-ACTELION-A-NJ2017-152256

PATIENT
  Age: 67 Year
  Sex: Female
  Weight: 73.47 kg

DRUGS (12)
  1. UPTRAVI [Suspect]
     Active Substance: SELEXIPAG
     Dosage: 600 MCG, QD
     Route: 048
  2. TRACLEER [Suspect]
     Active Substance: BOSENTAN
     Dosage: UNK
     Route: 048
  3. ADCIRCA [Concomitant]
     Active Substance: TADALAFIL
  4. OXYGEN. [Concomitant]
     Active Substance: OXYGEN
     Dosage: 3 L/M
  5. UPTRAVI [Suspect]
     Active Substance: SELEXIPAG
     Dosage: 200 MCG, QD
     Route: 048
  6. TRACLEER [Suspect]
     Active Substance: BOSENTAN
     Indication: PULMONARY ARTERIAL HYPERTENSION
     Dosage: 125 MG, BID
     Route: 048
  7. UPTRAVI [Suspect]
     Active Substance: SELEXIPAG
     Dosage: 400 MCG IN AM, 200 MCG IN PM
     Route: 048
  8. TRACLEER [Suspect]
     Active Substance: BOSENTAN
     Dosage: 125 MG, BID
     Route: 048
  9. XARELTO [Concomitant]
     Active Substance: RIVAROXABAN
  10. UPTRAVI [Suspect]
     Active Substance: SELEXIPAG
     Indication: PULMONARY ARTERIAL HYPERTENSION
     Dosage: 200 MCG, BID
     Route: 048
     Dates: start: 201703
  11. UPTRAVI [Suspect]
     Active Substance: SELEXIPAG
     Dosage: 400 MCG, BID
     Route: 048
  12. AMLODIPINE [Concomitant]
     Active Substance: AMLODIPINE BESYLATE

REACTIONS (24)
  - Fatigue [Unknown]
  - Chest pain [Not Recovered/Not Resolved]
  - Clostridium difficile infection [Unknown]
  - Hypertonic bladder [Unknown]
  - Palpitations [Unknown]
  - Pulmonary arterial hypertension [Unknown]
  - Influenza [Unknown]
  - Blood glucose abnormal [Unknown]
  - Malaise [Unknown]
  - Arterial occlusive disease [Unknown]
  - Toothache [Unknown]
  - Hypersomnia [Unknown]
  - Ear haemorrhage [Unknown]
  - Nausea [Not Recovered/Not Resolved]
  - Condition aggravated [Unknown]
  - Diabetes mellitus [Unknown]
  - Headache [Not Recovered/Not Resolved]
  - Dyspnoea [Unknown]
  - Vomiting [Unknown]
  - Gait disturbance [Unknown]
  - Disease progression [Unknown]
  - Dyspnoea exertional [Unknown]
  - Dyspnoea at rest [Unknown]
  - Oropharyngeal pain [Unknown]

NARRATIVE: CASE EVENT DATE: 201901
